FAERS Safety Report 6088144-2 (Version None)
Quarter: 2009Q1

REPORT INFORMATION
  Report Type: 
  Country: None (occurrence: None)
  Receive Date: 20090218
  Receipt Date: 20090212
  Transmission Date: 20090719
  Serious: Yes (Death, Hospitalization)
  Sender: FDA-Public Use
  Company Number: 2009-00567

PATIENT
  Age: 76 Year
  Sex: Male
  Weight: 108 kg

DRUGS (4)
  1. VELCADE [Suspect]
     Indication: MANTLE CELL LYMPHOMA
     Dosage: 2 MG UNK INTRAVENOUS
     Route: 042
     Dates: start: 20081103, end: 20081103
  2. RITUXIMAB (RITUXIMAB) INJECTION, 375 MG/M2 [Suspect]
     Indication: MANTLE CELL LYMPHOMA
     Dosage: 857 MG UNK INTRAVENOUS
     Route: 042
     Dates: start: 20081103, end: 20081103
  3. DOXORUBICIN HCL [Suspect]
     Indication: MANTLE CELL LYMPHOMA
     Dosage: 15 MG UNK INTRAVENOUS
     Route: 042
     Dates: start: 20081103, end: 20081106
  4. DEXAMETHASONE TAB [Suspect]
     Indication: MANTLE CELL LYMPHOMA
     Dosage: 40MG UNK ORAL
     Route: 048
     Dates: start: 20081103, end: 20081106

REACTIONS (6)
  - DIARRHOEA [None]
  - DYSPNOEA [None]
  - GENERALISED OEDEMA [None]
  - HYPOXIA [None]
  - RENAL FAILURE [None]
  - RESPIRATORY TRACT INFECTION [None]
